FAERS Safety Report 6424532-X (Version None)
Quarter: 2009Q4

REPORT INFORMATION
  Report Type: 
  Country: None (occurrence: None)
  Receive Date: 20091103
  Receipt Date: 20091023
  Transmission Date: 20100525
  Serious: Yes (Other)
  Sender: FDA-Public Use
  Company Number: JP-ROCHE-665253

PATIENT
  Sex: Female

DRUGS (3)
  1. XELODA [Suspect]
     Indication: BREAST CANCER
     Route: 048
     Dates: start: 20090206
  2. ELPLAT [Suspect]
     Indication: BREAST CANCER
     Route: 041
     Dates: start: 20090401
  3. HERCEPTIN [Concomitant]
     Route: 041
     Dates: start: 20080606

REACTIONS (1)
  - INTERSTITIAL LUNG DISEASE [None]
